FAERS Safety Report 15860389 (Version 3)
Quarter: 2019Q1

REPORT INFORMATION
  Report Type: Spontaneous
  Country: US (occurrence: US)
  Receive Date: 20190123
  Receipt Date: 20190201
  Transmission Date: 20190417
  Serious: No
  Sender: FDA-Public Use
  Company Number: US-009507513-1901USA007876

PATIENT
  Age: 21 Year
  Sex: Female
  Weight: 99.77 kg

DRUGS (1)
  1. NEXPLANON [Suspect]
     Active Substance: ETONOGESTREL
     Dosage: IMPLANT, LEFT ARM, EVERY 3 YEARS
     Route: 059
     Dates: start: 20160519

REACTIONS (4)
  - Migraine [Unknown]
  - Device kink [Not Recovered/Not Resolved]
  - Nausea [Unknown]
  - Breast tenderness [Unknown]

NARRATIVE: CASE EVENT DATE: 20160519
